FAERS Safety Report 25646116 (Version 1)
Quarter: 2025Q3

REPORT INFORMATION
  Report Type: Spontaneous
  Country: US (occurrence: US)
  Receive Date: 20250805
  Receipt Date: 20250805
  Transmission Date: 20251020
  Serious: Yes (Other)
  Sender: VIIV
  Company Number: US-VIIV HEALTHCARE-US2025097709

PATIENT
  Sex: Male

DRUGS (4)
  1. CABENUVA [Interacting]
     Active Substance: CABOTEGRAVIR\RILPIVIRINE
     Indication: Product used for unknown indication
  2. CABENUVA [Interacting]
     Active Substance: CABOTEGRAVIR\RILPIVIRINE
  3. CABENUVA [Interacting]
     Active Substance: CABOTEGRAVIR\RILPIVIRINE
  4. MAGNESIUM [Interacting]
     Active Substance: MAGNESIUM
     Indication: Product used for unknown indication

REACTIONS (2)
  - Viral load increased [Recovered/Resolved]
  - Drug interaction [Unknown]
